FAERS Safety Report 6739844-X (Version None)
Quarter: 2010Q2

REPORT INFORMATION
  Report Type: 
  Country: None (occurrence: None)
  Receive Date: 20100525
  Receipt Date: 20100514
  Transmission Date: 20101027
  Serious: Yes (Other)
  Sender: FDA-Public Use
  Company Number: PHHY2010BR31767

PATIENT
  Sex: Female

DRUGS (1)
  1. RITALIN LA [Suspect]
     Dosage: 30 MG, UNK

REACTIONS (6)
  - DECREASED APPETITE [None]
  - HEADACHE [None]
  - INSOMNIA [None]
  - NERVOUSNESS [None]
  - PAIN [None]
  - PARALYSIS [None]
